FAERS Safety Report 5189899-1 (Version None)
Quarter: 2006Q4

REPORT INFORMATION
  Report Type: 
  Country: None (occurrence: None)
  Receive Date: 20061218
  Receipt Date: 20061207
  Transmission Date: 20070319
  Serious: Yes (Other)
  Sender: FDA-Public Use
  Company Number: 230786K06CAN

PATIENT
  Sex: Female

DRUGS (1)
  1. REBIF [Suspect]
     Indication: RELAPSING-REMITTING MULTIPLE SCLEROSIS
     Dosage: SUBCUTANEOUS
     Route: 058
     Dates: start: 20021021

REACTIONS (5)
  - BREAST CANCER FEMALE [None]
  - CARDIAC VENTRICULAR DISORDER [None]
  - DEPRESSION [None]
  - DYSPNOEA [None]
  - POST PROCEDURAL COMPLICATION [None]
